FAERS Safety Report 11659121 (Version 12)
Quarter: 2018Q3

REPORT INFORMATION
  Report Type: Report from Study
  Country: DE (occurrence: DE)
  Receive Date: 20151026
  Receipt Date: 20180726
  Transmission Date: 20181010
  Serious: Yes (Death, Hospitalization, Other)
  Sender: FDA-Public Use
  Company Number: DE-ROCHE-1650296

PATIENT
  Age: 73 Year
  Sex: Male
  Weight: 102 kg

DRUGS (9)
  1. NEBIVOLOL. [Concomitant]
     Active Substance: NEBIVOLOL
  2. ESBRIET [Suspect]
     Active Substance: PIRFENIDONE
     Indication: IDIOPATHIC PULMONARY FIBROSIS
     Dosage: 2 DOSAGE FORM (DF)
     Route: 048
     Dates: start: 20130820
  3. PREDNISOLON [Concomitant]
     Active Substance: PREDNISOLONE
     Route: 065
  4. INSULIN [Concomitant]
     Active Substance: INSULIN NOS
     Route: 065
  5. ASPIRIN. [Concomitant]
     Active Substance: ASPIRIN
     Route: 065
  6. PANTOPRAZOL [Concomitant]
     Active Substance: PANTOPRAZOLE SODIUM
     Route: 065
  7. TALCID [Concomitant]
     Active Substance: HYDROTALCITE
     Route: 065
  8. BRILIQUE [Concomitant]
     Active Substance: TICAGRELOR
     Route: 065
  9. PRAVASTATIN. [Concomitant]
     Active Substance: PRAVASTATIN
     Route: 065

REACTIONS (15)
  - Dyspnoea exertional [Unknown]
  - Death [Fatal]
  - Dyspnoea [Unknown]
  - Nasopharyngitis [Unknown]
  - Malaise [Unknown]
  - Vascular stent occlusion [Recovered/Resolved]
  - Bronchitis [Recovering/Resolving]
  - Nasopharyngitis [Unknown]
  - Asthenia [Recovering/Resolving]
  - Dyspnoea [Not Recovered/Not Resolved]
  - Influenza [Not Recovered/Not Resolved]
  - Oxygen saturation decreased [Unknown]
  - Fatigue [Unknown]
  - Myocardial infarction [Recovered/Resolved]
  - Coronary artery stenosis [Recovered/Resolved with Sequelae]

NARRATIVE: CASE EVENT DATE: 20151007
